FAERS Safety Report 4642294-3 (Version None)
Quarter: 2005Q2

REPORT INFORMATION
  Report Type: 
  Country: None (occurrence: None)
  Receive Date: 20050421
  Receipt Date: 20050421
  Transmission Date: 20051028
  Serious: Yes (Other)
  Sender: FDA-Public Use
  Company Number: None

PATIENT
  Age: 70 Year
  Sex: Male
  Weight: 96.1626 kg

DRUGS (1)
  1. EQUATE TARTAR PROTECTION WAL-MART STORES [Suspect]

REACTIONS (4)
  - ADVERSE DRUG REACTION [None]
  - DISCOMFORT [None]
  - NAUSEA [None]
  - POISONING [None]
